FAERS Safety Report 10764240 (Version 3)
Quarter: 2016Q1

REPORT INFORMATION
  Report Type: Report from Study
  Country: NO (occurrence: NO)
  Receive Date: 20150205
  Receipt Date: 20160205
  Transmission Date: 20160525
  Serious: Yes (Death, Other)
  Sender: FDA-Public Use
  Company Number: NO-ROCHE-1527489

PATIENT

DRUGS (1)
  1. BEVACIZUMAB [Suspect]
     Active Substance: BEVACIZUMAB
     Indication: NEOVASCULAR AGE-RELATED MACULAR DEGENERATION
     Route: 050

REACTIONS (23)
  - Myocardial infarction [Unknown]
  - Angle closure glaucoma [Unknown]
  - Angiopathy [Unknown]
  - Endophthalmitis [Unknown]
  - Retinal haemorrhage [Unknown]
  - Visual acuity reduced [Unknown]
  - Cerebrovascular accident [Unknown]
  - Transient ischaemic attack [Unknown]
  - Mediastinal disorder [Unknown]
  - Respiratory disorder [Unknown]
  - Ill-defined disorder [Unknown]
  - Retinal pigment epithelial tear [Unknown]
  - Death [Fatal]
  - Musculoskeletal disorder [Unknown]
  - Hypertension [Unknown]
  - Infection [Unknown]
  - Connective tissue disorder [Unknown]
  - Cardiac disorder [Unknown]
  - Pseudoendophthalmitis [Unknown]
  - Nervous system disorder [Unknown]
  - Neoplasm [Unknown]
  - Gastrointestinal disorder [Unknown]
  - Retinal tear [Unknown]
